FAERS Safety Report 4579422-4 (Version None)
Quarter: 2005Q1

REPORT INFORMATION
  Report Type: 
  Country: None (occurrence: None)
  Receive Date: 20050209
  Receipt Date: 20050124
  Transmission Date: 20050727
  Serious: Yes (Hospitalization, Other)
  Sender: FDA-Public Use
  Company Number: US_0501111591

PATIENT
  Sex: Female

DRUGS (1)
  1. HUMALOG [Suspect]
     Dosage: 50 U DAY
     Dates: start: 20041124, end: 20041212

REACTIONS (8)
  - ABNORMAL SENSATION IN EYE [None]
  - BLINDNESS TRANSIENT [None]
  - BLOOD GLUCOSE INCREASED [None]
  - CEREBROVASCULAR ACCIDENT [None]
  - DYSSTASIA [None]
  - MIDDLE INSOMNIA [None]
  - NAUSEA [None]
  - VOMITING [None]
